FAERS Safety Report 20059232 (Version 3)
Quarter: 2021Q4

REPORT INFORMATION
  Report Type: Spontaneous
  Country: BE (occurrence: BE)
  Receive Date: 20211111
  Receipt Date: 20211217
  Transmission Date: 20220303
  Serious: Yes (Life-Threatening)
  Sender: FDA-Public Use
  Company Number: BE-ASPEN-GLO2021BE008437

PATIENT
  Age: 37 Year
  Sex: Female

DRUGS (7)
  1. DEXAMETHASONE [Suspect]
     Active Substance: DEXAMETHASONE
     Indication: Thrombocytopenia
     Dosage: 40 MG
     Route: 042
  2. DANAPAROID SODIUM [Suspect]
     Active Substance: DANAPAROID SODIUM
     Indication: Thrombocytopenia
     Dosage: UNK, CONTINUOUS INFUSION
     Route: 042
  3. DANAPAROID SODIUM [Suspect]
     Active Substance: DANAPAROID SODIUM
     Dosage: UNK
     Route: 040
  4. IMMUNE GLOBULIN NOS [Suspect]
     Active Substance: IMMUNE GLOBULIN NOS
     Indication: Thrombocytopenia
     Route: 042
  5. DESMOPRESSIN [Concomitant]
     Active Substance: DESMOPRESSIN
     Indication: Diabetes insipidus
     Route: 042
  6. MANNITOL [Concomitant]
     Active Substance: MANNITOL
     Indication: Product used for unknown indication
     Route: 042
  7. PLATELETS TRANSFUSION [Concomitant]
     Indication: Product used for unknown indication

REACTIONS (1)
  - Therapy non-responder [Unknown]
